FAERS Safety Report 18871482 (Version 1)
Quarter: 2021Q1

REPORT INFORMATION
  Report Type: Report from Study
  Country: KR (occurrence: KR)
  Receive Date: 20210210
  Receipt Date: 20210210
  Transmission Date: 20210420
  Serious: Yes (Other)
  Sender: FDA-Public Use
  Company Number: KR-ACCORD-217002

PATIENT
  Age: 30 Year
  Sex: Male

DRUGS (2)
  1. VALPROIC ACID. [Interacting]
     Active Substance: VALPROIC ACID
     Indication: SCHIZOPHRENIA
  2. CLOZAPINE. [Suspect]
     Active Substance: CLOZAPINE
     Indication: SCHIZOPHRENIA

REACTIONS (5)
  - Drug interaction [Unknown]
  - Electrocardiogram QT prolonged [Unknown]
  - Tremor [Unknown]
  - Sedation complication [Unknown]
  - Constipation [Unknown]
